FAERS Safety Report 8121573 (Version 2)
Quarter: 2014Q1

REPORT INFORMATION
  Report Type: Spontaneous
  Country: US (occurrence: US)
  Receive Date: 20110906
  Receipt Date: 20140303
  Transmission Date: 20141002
  Serious: Yes (Death, Hospitalization)
  Sender: FDA-Public Use
  Company Number: US-GLAXOSMITHKLINE-A0768751A

PATIENT
  Age: 64 Year
  Sex: Male
  Weight: 83 kg

DRUGS (5)
  1. AVANDIA [Suspect]
     Indication: TYPE 2 DIABETES MELLITUS
     Dosage: 4MG PER DAY
     Route: 048
     Dates: start: 1999, end: 200709
  2. NORVASC [Concomitant]
  3. LIPITOR [Concomitant]
  4. DILTIAZEM [Concomitant]
  5. VIOXX [Concomitant]

REACTIONS (10)
  - Cardiac arrest [Fatal]
  - Myocardial infarction [Unknown]
  - Sepsis [Unknown]
  - Staphylococcal infection [Unknown]
  - Pneumonia [Unknown]
  - Coronary artery disease [Unknown]
  - Angina pectoris [Unknown]
  - Cardiac failure congestive [Unknown]
  - Atrial fibrillation [Unknown]
  - Ischaemic cardiomyopathy [Unknown]
